FAERS Safety Report 21298083 (Version 1)
Quarter: 2022Q3

REPORT INFORMATION
  Report Type: Spontaneous
  Country: FR (occurrence: FR)
  Receive Date: 20220906
  Receipt Date: 20220906
  Transmission Date: 20221027
  Serious: Yes (Life-Threatening, Hospitalization)
  Sender: FDA-Public Use
  Company Number: None

PATIENT
  Age: 64 Year
  Sex: Male
  Weight: 70 kg

DRUGS (21)
  1. PAXLOVID [Suspect]
     Active Substance: NIRMATRELVIR\RITONAVIR
     Indication: COVID-19 treatment
     Dosage: [PF-07321332 300 MG]/[RITONAVIR 100 MG]; 2X/DAY
     Route: 048
     Dates: start: 20220630, end: 20220705
  2. FLUCONAZOLE [Suspect]
     Active Substance: FLUCONAZOLE
     Dosage: 400 MG, 1X/DAY
     Route: 048
     Dates: start: 20220630, end: 20220707
  3. LINEZOLID [Suspect]
     Active Substance: LINEZOLID
     Indication: Febrile bone marrow aplasia
     Dosage: 600 MG, 2X/DAY
     Route: 048
     Dates: start: 20220610, end: 20220614
  4. CELLCEPT [Suspect]
     Active Substance: MYCOPHENOLATE MOFETIL
     Indication: Prophylaxis against transplant rejection
     Dosage: 500 MG, 2X/DAY (AT 08:00 AM AND 08:00 PM)
     Route: 048
     Dates: start: 20220526, end: 20220627
  5. CILASTATIN SODIUM\IMIPENEM [Suspect]
     Active Substance: CILASTATIN SODIUM\IMIPENEM
     Indication: Febrile bone marrow aplasia
     Dosage: 1 G, 3X/DAY
     Route: 042
     Dates: start: 20220624, end: 20220702
  6. NEORAL [Suspect]
     Active Substance: CYCLOSPORINE
     Indication: Bone marrow transplant rejection
     Dosage: 240 MG, 2X/DAY (AT 08.00 AM AND 08.00 PM)
     Route: 048
     Dates: start: 20220620, end: 20220623
  7. NEORAL [Suspect]
     Active Substance: CYCLOSPORINE
     Dosage: UNK
     Route: 048
     Dates: start: 20220702
  8. METRONIDAZOLE [Suspect]
     Active Substance: METRONIDAZOLE
     Indication: Splenic infarction
     Dosage: 500 MG, 3X/DAY
     Route: 042
     Dates: start: 20220701, end: 20220704
  9. AMIKACIN [Suspect]
     Active Substance: AMIKACIN
     Dosage: 2000 MG, 1X/DAY
     Route: 042
     Dates: start: 20220701, end: 20220702
  10. AMIKACIN [Suspect]
     Active Substance: AMIKACIN
     Dosage: 1000 MG
     Route: 042
     Dates: start: 20220704, end: 20220704
  11. AMIKACIN [Suspect]
     Active Substance: AMIKACIN
     Dosage: 1500 MG
     Route: 042
     Dates: start: 20220705, end: 20220706
  12. ZOVIRAX [Suspect]
     Active Substance: ACYCLOVIR
     Dosage: 500 MG, 1X/DAY
     Route: 042
     Dates: start: 20220624, end: 20220630
  13. ZOVIRAX [Suspect]
     Active Substance: ACYCLOVIR
     Dosage: 500 MG, 1X/DAY
     Route: 042
     Dates: start: 20220706, end: 20220710
  14. PIPERACILLIN SODIUM\TAZOBACTAM SODIUM [Suspect]
     Active Substance: PIPERACILLIN SODIUM\TAZOBACTAM SODIUM
     Indication: Febrile bone marrow aplasia
     Dosage: 4 G, 4X/DAY
     Route: 042
     Dates: start: 20220530, end: 20220604
  15. PIPERACILLIN SODIUM\TAZOBACTAM SODIUM [Suspect]
     Active Substance: PIPERACILLIN SODIUM\TAZOBACTAM SODIUM
     Dosage: UNK
     Route: 042
     Dates: start: 20220608, end: 20220614
  16. PIPERACILLIN SODIUM\TAZOBACTAM SODIUM [Suspect]
     Active Substance: PIPERACILLIN SODIUM\TAZOBACTAM SODIUM
     Dosage: UNK
     Route: 042
     Dates: start: 20220614, end: 20220622
  17. VANCOMYCIN HYDROCHLORIDE [Suspect]
     Active Substance: VANCOMYCIN HYDROCHLORIDE
     Indication: Lung disorder
     Dosage: 24 MG/KG (LOADING DOSE)
     Route: 042
     Dates: start: 20220614, end: 20220614
  18. VANCOMYCIN HYDROCHLORIDE [Suspect]
     Active Substance: VANCOMYCIN HYDROCHLORIDE
     Dosage: 20 MG/KG, 2X/DAY (EVERY 12 HOURS)
     Route: 042
     Dates: start: 20220614, end: 20220622
  19. FLUCONAZOLE [Suspect]
     Active Substance: FLUCONAZOLE
     Dosage: 400 MG, 1X/DAY (AT 08.00 AM FOR 24 HOURS)
     Route: 042
     Dates: start: 20220624, end: 20220624
  20. FLUCONAZOLE [Suspect]
     Active Substance: FLUCONAZOLE
     Dosage: 200 MG, 1X/DAY (AT 08.00 AM)
     Route: 042
     Dates: start: 20220625, end: 20220630
  21. CYCLOSPORINE [Suspect]
     Active Substance: CYCLOSPORINE
     Indication: Prophylaxis against transplant rejection
     Dosage: 105.9 MG, 2X/DAY
     Route: 042
     Dates: start: 20220521

REACTIONS (4)
  - Coma [Recovered/Resolved]
  - Coma [Recovered/Resolved]
  - Confusional state [Not Recovered/Not Resolved]
  - Off label use [Unknown]

NARRATIVE: CASE EVENT DATE: 20220610
